FAERS Safety Report 7353627-1 (Version None)
Quarter: 2011Q1

REPORT INFORMATION
  Report Type: 
  Country: None (occurrence: None)
  Receive Date: 20110303
  Receipt Date: 20100401
  Transmission Date: 20110831
  Serious: Yes (Other)
  Sender: FDA-Public Use
  Company Number: US-004258

PATIENT
  Age: 45 Year
  Sex: Female
  Weight: 125 kg

DRUGS (8)
  1. COUMADIN [Concomitant]
  2. TORADOL [Concomitant]
  3. BENADRYL [Concomitant]
  4. PREDNISONE TAB [Concomitant]
  5. ISOVUE-300 [Suspect]
     Indication: CHEST PAIN
     Dosage: 100ML ONCE INTRAVENOUS (NOT OTHERWISE SPECIFIED)
     Route: 042
     Dates: start: 20100331, end: 20100331
  6. ISOVUE-300 [Suspect]
     Indication: COMPUTERISED TOMOGRAM ABDOMEN
     Dosage: 100ML ONCE INTRAVENOUS (NOT OTHERWISE SPECIFIED)
     Route: 042
     Dates: start: 20100331, end: 20100331
  7. ISOVUE-300 [Suspect]
     Indication: COMPUTERISED TOMOGRAM THORAX
     Dosage: 100ML ONCE INTRAVENOUS (NOT OTHERWISE SPECIFIED)
     Route: 042
     Dates: start: 20100331, end: 20100331
  8. ISOVUE-300 [Suspect]
     Indication: DYSPNOEA
     Dosage: 100ML ONCE INTRAVENOUS (NOT OTHERWISE SPECIFIED)
     Route: 042
     Dates: start: 20100331, end: 20100331

REACTIONS (2)
  - CHEST DISCOMFORT [None]
  - THROAT TIGHTNESS [None]
